FAERS Safety Report 7487548-0 (Version None)
Quarter: 2011Q2

REPORT INFORMATION
  Report Type: 
  Country: None (occurrence: None)
  Receive Date: 20110518
  Receipt Date: 20110511
  Transmission Date: 20111010
  Serious: Yes (Hospitalization)
  Sender: FDA-Public Use
  Company Number: US-BRISTOL-MYERS SQUIBB COMPANY-15736796

PATIENT
  Age: 42 Year
  Sex: Female

DRUGS (2)
  1. COUMADIN [Suspect]
  2. OXYCONTIN [Suspect]

REACTIONS (2)
  - PAIN [None]
  - WITHDRAWAL SYNDROME [None]
